FAERS Safety Report 7051602-8 (Version None)
Quarter: 2010Q4

REPORT INFORMATION
  Report Type: 
  Country: None (occurrence: None)
  Receive Date: 20101018
  Receipt Date: 20101018
  Transmission Date: 20110411
  Serious: Yes (Life-Threatening, Other)
  Sender: FDA-Public Use
  Company Number: None

PATIENT
  Age: 50 Year
  Sex: Female
  Weight: 73.4827 kg

DRUGS (3)
  1. OXYCONTIN [Suspect]
     Indication: BACK PAIN
     Dosage: 2 PILLS DAILY 1/12 HRS PO
     Route: 048
     Dates: start: 20100903, end: 20100929
  2. OXYCONTIN [Suspect]
     Indication: NECK PAIN
     Dosage: 2 PILLS DAILY 1/12 HRS PO
     Route: 048
     Dates: start: 20100903, end: 20100929
  3. OXYCODONE HCL EXTENDED-RELEASE [Concomitant]

REACTIONS (5)
  - ABDOMINAL PAIN UPPER [None]
  - HEADACHE [None]
  - INADEQUATE ANALGESIA [None]
  - NAUSEA [None]
  - PRODUCT FORMULATION ISSUE [None]
